FAERS Safety Report 18665540 (Version 1)
Quarter: 2020Q4

REPORT INFORMATION
  Report Type: Spontaneous
  Country: US (occurrence: US)
  Receive Date: 20201226
  Receipt Date: 20201226
  Transmission Date: 20210114
  Serious: Yes (Other)
  Sender: FDA-Public Use
  Company Number: US-ASTRAZENECA-2020SF69444

PATIENT
  Sex: Female

DRUGS (1)
  1. IMFINZI [Suspect]
     Active Substance: DURVALUMAB
     Route: 042

REACTIONS (7)
  - Alopecia [Unknown]
  - Hepatic mass [Unknown]
  - Glucose tolerance impaired [Unknown]
  - Weight increased [Unknown]
  - Thyroid mass [Unknown]
  - Cardiomegaly [Unknown]
  - Blood glucose increased [Not Recovered/Not Resolved]
